FAERS Safety Report 7676593-8 (Version None)
Quarter: 2011Q3

REPORT INFORMATION
  Report Type: 
  Country: None (occurrence: None)
  Receive Date: 20110809
  Receipt Date: 20110809
  Transmission Date: 20111222
  Serious: No
  Sender: FDA-Public Use
  Company Number: None

PATIENT
  Sex: Female
  Weight: 57.1 kg

DRUGS (1)
  1. ENBREL [Suspect]
     Indication: ARTHRITIS
     Dosage: 25MG QW SQ
     Route: 058
     Dates: start: 20110713

REACTIONS (4)
  - FEELING JITTERY [None]
  - BLOOD PRESSURE INCREASED [None]
  - HEADACHE [None]
  - ANXIETY [None]
